FAERS Safety Report 7032929-2 (Version None)
Quarter: 2010Q4

REPORT INFORMATION
  Report Type: 
  Country: None (occurrence: None)
  Receive Date: 20101007
  Receipt Date: 20100322
  Transmission Date: 20110411
  Serious: Yes (Other)
  Sender: FDA-Public Use
  Company Number: US-BAYER-200934756NA

PATIENT
  Age: 17 Year
  Sex: Female
  Weight: 142 kg

DRUGS (12)
  1. YASMIN [Suspect]
     Indication: CONTRACEPTION
     Dosage: 3 ONCE A DAY
     Route: 048
  2. OCELLA [Suspect]
     Indication: CONTRACEPTION
     Route: 048
  3. SYNTHROID [Concomitant]
     Indication: HYPOTHYROIDISM
     Route: 065
     Dates: start: 20071001, end: 20090101
  4. PHENTERMINE [Concomitant]
     Indication: WEIGHT DECREASED
     Route: 065
     Dates: start: 20080101
  5. VITAMIN AND MINERAL PRENATAL SUPPLEMENT W/ FOLIC ACID CAP [Concomitant]
     Indication: MEDICAL DIET
     Route: 065
     Dates: start: 20080101
  6. METFORMIN [Concomitant]
     Indication: POLYCYSTIC OVARIES
     Dosage: UNIT DOSE: 500 MG
     Route: 065
     Dates: start: 20070101, end: 20090101
  7. METFORMIN [Concomitant]
     Dosage: UNIT DOSE: 100 MG
     Route: 065
     Dates: start: 20070101, end: 20090101
  8. HYDROXYZINE [Concomitant]
     Indication: ANTIALLERGIC THERAPY
     Route: 065
     Dates: start: 20070101
  9. ATENOLOL [Concomitant]
     Indication: BLOOD PRESSURE MANAGEMENT
     Dosage: UNIT DOSE: 50 MG
     Route: 065
     Dates: start: 20070101
  10. AMOXICILLIN [Concomitant]
     Indication: ANTIBIOTIC THERAPY
     Dosage: UNIT DOSE: 500 MG
     Route: 065
     Dates: start: 20081222, end: 20090101
  11. PROZAC [Concomitant]
     Indication: DEPRESSION
     Route: 065
     Dates: start: 20080101, end: 20100101
  12. FIORICET [Concomitant]
     Indication: HEADACHE
     Route: 065
     Dates: start: 20080101, end: 20100101

REACTIONS (10)
  - ABDOMINAL PAIN UPPER [None]
  - ANXIETY [None]
  - CHOLECYSTITIS CHRONIC [None]
  - CHOLELITHIASIS [None]
  - GALLBLADDER CHOLESTEROLOSIS [None]
  - MUCOSAL EROSION [None]
  - NAUSEA [None]
  - PAIN [None]
  - PORTAL VEIN THROMBOSIS [None]
  - VOMITING [None]
